FAERS Safety Report 19294533 (Version 1)
Quarter: 2021Q2

REPORT INFORMATION
  Report Type: Spontaneous
  Country: EG (occurrence: EG)
  Receive Date: 20210524
  Receipt Date: 20210524
  Transmission Date: 20210717
  Serious: Yes (Hospitalization)
  Sender: FDA-Public Use
  Company Number: EG-MYLANLABS-2021M1029258

PATIENT
  Age: 59 Year
  Sex: Female
  Weight: 75 kg

DRUGS (3)
  1. UTORAL [Interacting]
     Active Substance: FLUOROURACIL
     Indication: BREAST CANCER
     Dosage: 1000 MILLIGRAM
     Route: 042
     Dates: start: 20210323, end: 20210323
  2. EPIRUBICIN MYLAN [Suspect]
     Active Substance: EPIRUBICIN
     Indication: BREAST CANCER
     Dosage: 190 MILLIGRAM
     Route: 042
     Dates: start: 20210323, end: 20210323
  3. ENDOXAN                            /00021101/ [Suspect]
     Active Substance: CYCLOPHOSPHAMIDE
     Indication: BREAST CANCER
     Dosage: 1 GRAM
     Route: 042
     Dates: start: 20210323, end: 20210323

REACTIONS (1)
  - Dyspnoea [Recovered/Resolved]

NARRATIVE: CASE EVENT DATE: 20210323
